FAERS Safety Report 8293717-2 (Version None)
Quarter: 2012Q2

REPORT INFORMATION
  Report Type: 
  Country: None (occurrence: None)
  Receive Date: 20120413
  Receipt Date: 20120409
  Transmission Date: 20120825
  Serious: Yes (Hospitalization, Other)
  Sender: FDA-Public Use
  Company Number: 2009SP021064

PATIENT
  Age: 48 Year
  Sex: Female
  Weight: 65.7716 kg

DRUGS (3)
  1. COSOPT [Concomitant]
  2. NUVARING [Suspect]
     Indication: MENSTRUATION IRREGULAR
     Dates: start: 20070101, end: 20070801
  3. SYNTHROID [Concomitant]

REACTIONS (22)
  - THROMBOSIS [None]
  - INFECTION [None]
  - TRICUSPID VALVE INCOMPETENCE [None]
  - OCCULT BLOOD POSITIVE [None]
  - PULMONARY EMBOLISM [None]
  - SINUS TACHYCARDIA [None]
  - CONSTIPATION [None]
  - RENAL DISORDER [None]
  - PULMONARY HYPERTENSION [None]
  - CERUMEN IMPACTION [None]
  - HEPATIC CYST [None]
  - DYSPNOEA [None]
  - WEIGHT DECREASED [None]
  - HYPERCOAGULATION [None]
  - HYPOTHYROIDISM [None]
  - UTERINE LEIOMYOMA [None]
  - NEOPLASM MALIGNANT [None]
  - OVARIAN CYST [None]
  - HYPOKALAEMIA [None]
  - DIASTOLIC DYSFUNCTION [None]
  - RESPIRATORY ALKALOSIS [None]
  - PELVIC PAIN [None]
